FAERS Safety Report 23449061 (Version 3)
Quarter: 2024Q1

REPORT INFORMATION
  Report Type: Spontaneous
  Country: JP (occurrence: JP)
  Receive Date: 20240128
  Receipt Date: 20240216
  Transmission Date: 20240409
  Serious: Yes (Death, Other)
  Sender: FDA-Public Use
  Company Number: JP-BRISTOL-MYERS SQUIBB COMPANY-2024-012981

PATIENT
  Age: 7 Decade
  Sex: Male

DRUGS (4)
  1. YERVOY [Suspect]
     Active Substance: IPILIMUMAB
     Indication: Non-small cell lung cancer
     Dosage: DOSE : UNAVAILABLE;     FREQ : OP: 1 TIME?YV: UNAVAILABLE
     Route: 041
     Dates: start: 20231227, end: 20231227
  2. OPDIVO [Suspect]
     Active Substance: NIVOLUMAB
     Indication: Non-small cell lung cancer
     Dosage: ONCE
     Route: 041
     Dates: start: 20231227, end: 20231227
  3. PACLITAXEL [Suspect]
     Active Substance: PACLITAXEL
     Indication: Non-small cell lung cancer
     Dates: start: 20231227, end: 20231227
  4. CARBOPLATIN [Suspect]
     Active Substance: CARBOPLATIN
     Indication: Non-small cell lung cancer
     Dates: start: 20231227, end: 20231227

REACTIONS (1)
  - Death [Fatal]

NARRATIVE: CASE EVENT DATE: 20240106
